FAERS Safety Report 25084070 (Version 1)
Quarter: 2025Q1

REPORT INFORMATION
  Report Type: Spontaneous
  Country: US (occurrence: None)
  Receive Date: 20250315
  Receipt Date: 20250315
  Transmission Date: 20250408
  Serious: Yes (Hospitalization)
  Sender: FDA-CTU
  Company Number: None

PATIENT
  Sex: Female

DRUGS (1)
  1. KISQALI [Suspect]
     Active Substance: RIBOCICLIB
     Indication: Breast cancer female
     Dosage: 200MG DAILY 21OUT 28 DAYS  ORALLY ?
     Route: 048
     Dates: start: 202310

REACTIONS (2)
  - Seizure [None]
  - Cerebrovascular accident [None]
